FAERS Safety Report 8954397 (Version 1)
Quarter: 2012Q4

REPORT INFORMATION
  Report Type: 
  Country: JP (occurrence: JP)
  Receive Date: 20121207
  Receipt Date: 20121207
  Transmission Date: 20130627
  Serious: Yes (Other)
  Sender: FDA-Public Use
  Company Number: JP-B.I. PHARMACEUTICALS,INC./RIDGEFIELD-2012-BI-02755YA

PATIENT
  Age: 71 Year
  Sex: Male

DRUGS (4)
  1. TAMSULOSINA [Suspect]
     Dosage: 0.2 mg
     Route: 048
  2. EVIPROSTAT (SERENOA REPENS) TABLET [Concomitant]
  3. TOFRANIL (IMIPRAMINE HYDROCHLORIDE) TABLET [Concomitant]
  4. BUP-4 (PROPIVERINE HYDROCHLORIDE) TABLET [Concomitant]

REACTIONS (1)
  - Musculoskeletal stiffness [Unknown]
